FAERS Safety Report 12590169 (Version 1)
Quarter: 2016Q3

REPORT INFORMATION
  Report Type: Spontaneous
  Country: US (occurrence: US)
  Receive Date: 20160725
  Receipt Date: 20160725
  Transmission Date: 20161109
  Serious: Yes (Other)
  Sender: FDA-Public Use
  Company Number: US-BAYER-2016-137550

PATIENT
  Age: 64 Year
  Sex: Male
  Weight: 71.2 kg

DRUGS (5)
  1. BAYER PRO ULTRA OMEGA-3 [Suspect]
     Active Substance: CHOLECALCIFEROL\OMEGA-3 FATTY ACIDS
     Indication: VITAMIN SUPPLEMENTATION
     Dosage: 1 DF, ONCE
     Route: 048
     Dates: start: 20160712
  2. BAYER LOW DOSE [Suspect]
     Active Substance: ASPIRIN
     Indication: THROMBOSIS PROPHYLAXIS
     Dosage: 1 DF, QD
     Route: 048
     Dates: start: 1996
  3. FLOMAX [Concomitant]
     Active Substance: TAMSULOSIN HYDROCHLORIDE
  4. BAYER LOW DOSE [Suspect]
     Active Substance: ASPIRIN
     Indication: SUPPLEMENTATION THERAPY
  5. AVODART [Concomitant]
     Active Substance: DUTASTERIDE

REACTIONS (4)
  - Product use issue [Unknown]
  - Product use issue [None]
  - Nephrolithiasis [Recovered/Resolved]
  - Heart rate increased [Recovered/Resolved]

NARRATIVE: CASE EVENT DATE: 1996
